FAERS Safety Report 6506247-2 (Version None)
Quarter: 2009Q4

REPORT INFORMATION
  Report Type: 
  Country: None (occurrence: None)
  Receive Date: 20091218
  Receipt Date: 20091215
  Transmission Date: 20100525
  Serious: Yes (Death, Hospitalization)
  Sender: FDA-Public Use
  Company Number: PHHY2009GB38199

PATIENT
  Sex: Female
  Weight: 76 kg

DRUGS (2)
  1. CLOZARIL [Suspect]
     Indication: SCHIZOPHRENIA
     Dosage: UNK
     Dates: start: 20090818
  2. CLOZARIL [Suspect]
     Dosage: 100 MG MORNING AND 125 MG NIGHT
     Dates: start: 20090831

REACTIONS (4)
  - CARDIAC ARREST [None]
  - FALL [None]
  - LOWER RESPIRATORY TRACT INFECTION [None]
  - PULMONARY EMBOLISM [None]
